FAERS Safety Report 5884137-6 (Version None)
Quarter: 2008Q3

REPORT INFORMATION
  Report Type: 
  Country: None (occurrence: None)
  Receive Date: 20080915
  Receipt Date: 20080902
  Transmission Date: 20090109
  Serious: Yes (Life-Threatening)
  Sender: FDA-Public Use
  Company Number: PHEH1996US08321

PATIENT
  Sex: Male

DRUGS (1)
  1. SANDIMMUNE [Suspect]
     Route: 048
     Dates: start: 19960910

REACTIONS (3)
  - RESPIRATORY FAILURE [None]
  - SEPSIS [None]
  - TRANSPLANT REJECTION [None]
